FAERS Safety Report 6818514 (Version 5)
Quarter: 2015Q4

REPORT INFORMATION
  Report Type: Report from Study
  Country: AR (occurrence: AR)
  Receive Date: 20081121
  Receipt Date: 20151221
  Transmission Date: 20160305
  Serious: Yes (Hospitalization, Other)
  Sender: FDA-Public Use
  Company Number: PHHY2008AR28074

PATIENT
  Sex: Female

DRUGS (2)
  1. DIOVAN [Suspect]
     Active Substance: VALSARTAN
     Indication: HYPERTENSION
     Dosage: 1 DF, QD
     Route: 048
     Dates: start: 2002
  2. INSULIN [Concomitant]
     Active Substance: INSULIN NOS
     Indication: TYPE 1 DIABETES MELLITUS
     Route: 065

REACTIONS (9)
  - Fall [Recovering/Resolving]
  - Vision blurred [Not Recovered/Not Resolved]
  - Maculopathy [Not Recovered/Not Resolved]
  - Nervousness [Recovering/Resolving]
  - Cataract [Recovering/Resolving]
  - Visual acuity reduced [Unknown]
  - Visual impairment [Recovering/Resolving]
  - Eye haemorrhage [Unknown]
  - Hip fracture [Recovering/Resolving]

NARRATIVE: CASE EVENT DATE: 2013
